FAERS Safety Report 20629330 (Version 1)
Quarter: 2022Q1

REPORT INFORMATION
  Report Type: Report from Study
  Country: ES (occurrence: ES)
  Receive Date: 20220323
  Receipt Date: 20220323
  Transmission Date: 20220423
  Serious: Yes (Hospitalization)
  Sender: FDA-Public Use
  Company Number: ES-AstraZeneca-2022A113239

PATIENT
  Age: 71 Year
  Sex: Female

DRUGS (2)
  1. PALBOCICLIB [Suspect]
     Active Substance: PALBOCICLIB
     Indication: HER2 negative breast cancer
     Dosage: 75 MG, 1X/DAY
     Route: 065
     Dates: start: 20191218, end: 20220302
  2. AZD-9833 [Suspect]
     Active Substance: AZD-9833
     Indication: HER2 negative breast cancer
     Dosage: 150 MG, 1X/DAY
     Route: 048
     Dates: start: 20211218, end: 20220308

REACTIONS (1)
  - Spinal fracture [Recovering/Resolving]

NARRATIVE: CASE EVENT DATE: 20220304
